FAERS Safety Report 23016470 (Version 1)
Quarter: 2023Q4

REPORT INFORMATION
  Report Type: Spontaneous
  Country: US (occurrence: US)
  Receive Date: 20231002
  Receipt Date: 20231002
  Transmission Date: 20240110
  Serious: No
  Sender: FDA-Public Use
  Company Number: US-PCCINC-2023-PPL-000356

PATIENT

DRUGS (1)
  1. GABLOFEN [Suspect]
     Active Substance: BACLOFEN
     Indication: Product used for unknown indication
     Dosage: 125 MICROGRAM PER DAY
     Route: 037

REACTIONS (2)
  - Implant site swelling [Recovered/Resolved]
  - Implant site extravasation [Recovered/Resolved]
